FAERS Safety Report 9028747 (Version 1)
Quarter: 2013Q1

REPORT INFORMATION
  Report Type: Spontaneous
  Country: US (occurrence: US)
  Receive Date: 20130124
  Receipt Date: 20130124
  Transmission Date: 20140127
  Serious: Yes (Other)
  Sender: FDA-Public Use
  Company Number: US-PFIZER INC-2013028837

PATIENT
  Age: 72 Year
  Sex: Female
  Weight: 99.77 kg

DRUGS (5)
  1. LYRICA [Suspect]
     Indication: HERPES ZOSTER
     Dosage: UNK, 2X/DAY
  2. DIOVAN HCT [Concomitant]
     Indication: HYPERTENSION
     Dosage: 320/25MG, DAILY
  3. VERAPAMIL [Concomitant]
     Indication: CARDIAC DISORDER
     Dosage: 240 MG, DAILY
  4. LANTUS [Concomitant]
     Indication: DIABETES MELLITUS
     Dosage: UNK
  5. POTASSIUM [Concomitant]
     Indication: BLOOD POTASSIUM DECREASED
     Dosage: 540 MG, DAILY

REACTIONS (9)
  - Suicidal ideation [Recovered/Resolved]
  - Depression [Recovered/Resolved]
  - Agitation [Recovered/Resolved]
  - Feeling abnormal [Recovered/Resolved]
  - Nervousness [Recovered/Resolved]
  - Paraesthesia [Recovered/Resolved]
  - Hypoaesthesia [Recovered/Resolved]
  - Pruritus [Recovered/Resolved]
  - Drug ineffective [Unknown]
